FAERS Safety Report 6163959-0 (Version None)
Quarter: 2009Q2

REPORT INFORMATION
  Report Type: 
  Country: None (occurrence: None)
  Receive Date: 20090420
  Receipt Date: 20090409
  Transmission Date: 20091009
  Serious: Yes (Hospitalization)
  Sender: FDA-Public Use
  Company Number: TCI2009A01253

PATIENT
  Age: 8 Decade
  Sex: Female

DRUGS (3)
  1. ACTOS [Suspect]
     Indication: DIABETES MELLITUS
     Dosage: 15 MG (15 MG, 1 - 2) UNK
     Route: 048
     Dates: end: 20090330
  2. NORVASC [Suspect]
     Route: 048
  3. ALLELOCK (OLOPATADINE HYDROCHLORIDE) [Concomitant]

REACTIONS (1)
  - PHOTOSENSITIVITY REACTION [None]
